FAERS Safety Report 25770915 (Version 1)
Quarter: 2025Q3

REPORT INFORMATION
  Report Type: Spontaneous
  Country: EU (occurrence: EU)
  Receive Date: 20250908
  Receipt Date: 20250908
  Transmission Date: 20251021
  Serious: Yes (Hospitalization, Other)
  Sender: HIKMA
  Company Number: EU-20250826-5d6d3f

PATIENT
  Age: 29 Year
  Sex: Male
  Weight: 74 kg

DRUGS (6)
  1. BLEOMYCIN [Suspect]
     Active Substance: BLEOMYCIN SULFATE
     Indication: Testicular seminoma (pure)
     Route: 042
     Dates: start: 20250612, end: 20250626
  2. BLEOMYCIN [Suspect]
     Active Substance: BLEOMYCIN SULFATE
     Dosage: 300 MILLIGRAM, QD
     Route: 042
     Dates: start: 20250703, end: 20250703
  3. CISPLATIN [Suspect]
     Active Substance: CISPLATIN
     Dosage: 40.5 MILLIGRAM, QD
     Route: 065
     Dates: start: 20250703, end: 20250707
  4. CISPLATIN [Suspect]
     Active Substance: CISPLATIN
     Indication: Testicular seminoma (pure)
     Route: 042
     Dates: start: 20250612, end: 20250616
  5. ETOPOSIDE [Suspect]
     Active Substance: ETOPOSIDE
     Indication: Testicular seminoma (pure)
     Dosage: 200 MILLIGRAM, QD
     Route: 042
     Dates: start: 20250612, end: 20250616
  6. ETOPOSIDE [Suspect]
     Active Substance: ETOPOSIDE
     Dosage: 200 MILLIGRAM, QD
     Route: 042
     Dates: start: 20250703, end: 20250707

REACTIONS (2)
  - Small intestinal ulcer perforation [Unknown]
  - Duodenal ulcer [Unknown]

NARRATIVE: CASE EVENT DATE: 20250708
